FAERS Safety Report 4854297-4 (Version None)
Quarter: 2005Q4

REPORT INFORMATION
  Report Type: 
  Country: None (occurrence: None)
  Receive Date: 20051213
  Receipt Date: 20051213
  Transmission Date: 20060501
  Serious: Yes (Hospitalization)
  Sender: FDA-Public Use
  Company Number: None

PATIENT
  Age: 76 Year
  Sex: Male
  Weight: 63.05 kg

DRUGS (5)
  1. VENOFER [Suspect]
     Indication: IRON DEFICIENCY ANAEMIA
     Dosage: 500MG  ONE DOSE IV
     Route: 042
     Dates: start: 20050813, end: 20050813
  2. ADVAIR DISKUS 250/50 [Concomitant]
  3. MDI [Concomitant]
  4. METOPROLOL [Concomitant]
  5. LOSARTAN [Concomitant]

REACTIONS (4)
  - ASTHENIA [None]
  - DIZZINESS [None]
  - FALL [None]
  - LOSS OF CONSCIOUSNESS [None]
